FAERS Safety Report 8576416-9 (Version None)
Quarter: 2012Q3

REPORT INFORMATION
  Report Type: 
  Country: None (occurrence: None)
  Receive Date: 20120807
  Receipt Date: 20120606
  Transmission Date: 20120928
  Serious: Yes (Other)
  Sender: FDA-Public Use
  Company Number: FR-ROCHE-1095812

PATIENT
  Sex: Male

DRUGS (5)
  1. FLUOROURACIL [Concomitant]
     Dates: start: 20070701
  2. IRINOTECAN HCL [Concomitant]
     Dates: start: 20070701
  3. AVASTIN [Suspect]
     Dates: start: 20110111, end: 20110615
  4. AVASTIN [Suspect]
     Indication: COLON CANCER
     Dates: start: 20070701
  5. LEUCOVORIN CALCIUM [Concomitant]
     Dates: start: 20070701

REACTIONS (3)
  - EPISTAXIS [None]
  - DISEASE PROGRESSION [None]
  - APHTHOUS STOMATITIS [None]
